FAERS Safety Report 14705220 (Version 2)
Quarter: 2018Q2

REPORT INFORMATION
  Report Type: Spontaneous
  Country: MX (occurrence: MX)
  Receive Date: 20180402
  Receipt Date: 20180420
  Transmission Date: 20180711
  Serious: Yes (Other)
  Sender: FDA-Public Use
  Company Number: MX-ASTELLAS-2018US015356

PATIENT
  Age: 51 Year
  Sex: Male

DRUGS (10)
  1. TRIMETHOPRIM SULFAMETHOXAZOLE [Concomitant]
     Active Substance: SULFAMETHOXAZOLE\TRIMETHOPRIM
     Dosage: UNK, THRICE WEEKLY (EVERY MONDAY, WEDNESDAY, AND FRIDAY FOR 6 MONTHS)
     Route: 065
  2. VANCOMYCIN [Concomitant]
     Active Substance: VANCOMYCIN
     Indication: PROPHYLAXIS
     Dosage: 1.2 G, ONCE DAILY (1.2 G/24 H TOTAL DOSE)
     Route: 065
  3. TACROLIMUS. [Suspect]
     Active Substance: TACROLIMUS
     Indication: TRANSPLANT
     Route: 048
     Dates: start: 20151015
  4. PREDNISONE. [Suspect]
     Active Substance: PREDNISONE
     Indication: TRANSPLANT
     Route: 065
  5. MEROPENEM. [Concomitant]
     Active Substance: MEROPENEM
     Indication: PROPHYLAXIS
     Dosage: 1 G, ONCE DAILY (1 G/24 H TOTAL DOSE)
     Route: 065
  6. VALGANCICLOVIR. [Concomitant]
     Active Substance: VALGANCICLOVIR
     Indication: ANTIVIRAL PROPHYLAXIS
     Route: 048
  7. THYMOGLOBULIN [Concomitant]
     Active Substance: LAPINE T-LYMPHOCYTE IMMUNE GLOBULIN
     Indication: TRANSPLANT
     Route: 065
  8. TRIMETHOPRIM SULFAMETHOXAZOLE [Concomitant]
     Active Substance: SULFAMETHOXAZOLE\TRIMETHOPRIM
     Indication: ANTIFUNGAL PROPHYLAXIS
     Dosage: 160/800 MG EVERY 12 HOURS FOR 6 MONTHS
     Route: 065
  9. KETOCONAZOLE. [Concomitant]
     Active Substance: KETOCONAZOLE
     Indication: PRODUCT USED FOR UNKNOWN INDICATION
     Dosage: UNK, UNKNOWN FREQ.
     Route: 065
  10. CYTOMEGALOVIRUS IMMUNE GLOBULIN [Concomitant]
     Indication: PROPHYLAXIS
     Route: 048

REACTIONS (9)
  - Hyperglycaemia [Recovered/Resolved]
  - Herpes virus infection [Recovered/Resolved]
  - Off label use [Unknown]
  - Seroma [Unknown]
  - Muscle rupture [Unknown]
  - Axonal neuropathy [Recovered/Resolved]
  - Sinusitis [Recovered/Resolved]
  - Immunosuppressant drug level increased [Unknown]
  - Pneumonia [Recovered/Resolved]
